FAERS Safety Report 11059845 (Version 1)
Quarter: 2015Q2

REPORT INFORMATION
  Report Type: Report from Study
  Country: BR (occurrence: BR)
  Receive Date: 20150423
  Receipt Date: 20150423
  Transmission Date: 20150821
  Serious: Yes (Other)
  Sender: FDA-Public Use
  Company Number: BR-BAYER-2015-141493

PATIENT
  Age: 63 Year
  Sex: Male
  Weight: 110 kg

DRUGS (5)
  1. PROPRANOLOL [Concomitant]
     Active Substance: PROPRANOLOL\PROPRANOLOL HYDROCHLORIDE
     Indication: BLOOD PRESSURE
     Dosage: 2 DF, QD
     Route: 048
  2. HYDROCHLOROTHIAZIDE. [Concomitant]
     Active Substance: HYDROCHLOROTHIAZIDE
     Indication: BLOOD PRESSURE
     Dosage: 2 DF, QD
     Route: 048
     Dates: start: 2013
  3. NEXAVAR [Suspect]
     Active Substance: SORAFENIB
     Indication: NODULE
     Dosage: 400 MG, BID
     Route: 048
     Dates: start: 2014
  4. LOSARTAN [Concomitant]
     Active Substance: LOSARTAN
     Indication: BLOOD PRESSURE
     Dosage: 2 DF, QD
     Route: 048
     Dates: start: 2013
  5. NEXAVAR [Suspect]
     Active Substance: SORAFENIB
     Indication: NODULE
     Dosage: 200 MG, BID

REACTIONS (4)
  - Furuncle [Recovered/Resolved]
  - Gastric ulcer [Recovering/Resolving]
  - Abdominal discomfort [Recovering/Resolving]
  - Scrotal ulcer [Recovered/Resolved]

NARRATIVE: CASE EVENT DATE: 201502
